FAERS Safety Report 18110726 (Version 1)
Quarter: 2020Q3

REPORT INFORMATION
  Report Type: Spontaneous
  Country: US (occurrence: US)
  Receive Date: 20200804
  Receipt Date: 20200804
  Transmission Date: 20201103
  Serious: Yes (Hospitalization, Other)
  Sender: FDA-Public Use
  Company Number: US-SA-2020SA196277

PATIENT

DRUGS (8)
  1. ZOLPIDEM TARTRATE. [Suspect]
     Active Substance: ZOLPIDEM TARTRATE
     Indication: CRANIOCEREBRAL INJURY
  2. GABAPENTIN. [Suspect]
     Active Substance: GABAPENTIN
     Indication: CRANIOCEREBRAL INJURY
  3. OLANZAPINE. [Suspect]
     Active Substance: OLANZAPINE
     Indication: CRANIOCEREBRAL INJURY
  4. IMIPRAMINE [Suspect]
     Active Substance: IMIPRAMINE
     Indication: CRANIOCEREBRAL INJURY
  5. LAMOTRIGINE. [Suspect]
     Active Substance: LAMOTRIGINE
     Indication: CRANIOCEREBRAL INJURY
  6. LEVETIRACETAM. [Suspect]
     Active Substance: LEVETIRACETAM
     Indication: CRANIOCEREBRAL INJURY
  7. CLARITHROMYCIN. [Suspect]
     Active Substance: CLARITHROMYCIN
     Indication: CRANIOCEREBRAL INJURY
  8. MODAFINIL. [Suspect]
     Active Substance: MODAFINIL
     Indication: CRANIOCEREBRAL INJURY

REACTIONS (13)
  - Mental impairment [Recovering/Resolving]
  - Paranoia [Recovering/Resolving]
  - Perseveration [Recovering/Resolving]
  - Delusional perception [Recovering/Resolving]
  - Drug-disease interaction [Recovering/Resolving]
  - Trismus [Recovering/Resolving]
  - Gait disturbance [Recovering/Resolving]
  - Confabulation [Recovering/Resolving]
  - Cognitive disorder [Recovering/Resolving]
  - Muscle rigidity [Recovering/Resolving]
  - Memory impairment [Recovering/Resolving]
  - Drug interaction [Recovering/Resolving]
  - Fall [Unknown]
